FAERS Safety Report 11152700 (Version 1)
Quarter: 2015Q2

REPORT INFORMATION
  Report Type: Spontaneous
  Country: US (occurrence: US)
  Receive Date: 20150601
  Receipt Date: 20150601
  Transmission Date: 20150821
  Serious: No
  Sender: FDA-Public Use
  Company Number: US-009507513-1506USA000478

PATIENT
  Sex: Female
  Weight: 64.4 kg

DRUGS (1)
  1. CLINORIL [Suspect]
     Active Substance: SULINDAC
     Indication: ARTHRITIS

REACTIONS (1)
  - Adverse event [Unknown]
